FAERS Safety Report 8983933 (Version 1)
Quarter: 2012Q4

REPORT INFORMATION
  Report Type: Spontaneous
  Country: US (occurrence: None)
  Receive Date: 20121218
  Receipt Date: 20121218
  Transmission Date: 20130627
  Serious: Yes (Hospitalization)
  Sender: FDA-Public Use
  Company Number: None

PATIENT
  Sex: Female
  Weight: 72.58 kg

DRUGS (1)
  1. SAPHRIS [Suspect]
     Indication: BIPOLAR DISORDER
     Dosage: 1/2 tablet at bedtime po
     Route: 048
     Dates: start: 20111220, end: 20121220

REACTIONS (5)
  - Memory impairment [None]
  - Headache [None]
  - Crying [None]
  - Dyspnoea [None]
  - Disorientation [None]
